FAERS Safety Report 18472455 (Version 2)
Quarter: 2020Q4

REPORT INFORMATION
  Report Type: Report from Study
  Country: GB (occurrence: GB)
  Receive Date: 20201106
  Receipt Date: 20201106
  Transmission Date: 20210114
  Serious: Yes (Other)
  Sender: FDA-Public Use
  Company Number: GB-JNJFOC-20200903840

PATIENT
  Age: 23 Year
  Sex: Male

DRUGS (3)
  1. CHLORPHENAMINE [Suspect]
     Active Substance: CHLORPHENIRAMINE MALEATE
     Indication: RASH PRURITIC
  2. STELARA [Suspect]
     Active Substance: USTEKINUMAB
     Indication: CROHN^S DISEASE
     Route: 058
  3. STELARA [Suspect]
     Active Substance: USTEKINUMAB

REACTIONS (4)
  - Crohn^s disease [Not Recovered/Not Resolved]
  - Eczema [Not Recovered/Not Resolved]
  - Somnolence [Unknown]
  - Miliaria [Recovering/Resolving]

NARRATIVE: CASE EVENT DATE: 202010
